FAERS Safety Report 6125155-2 (Version None)
Quarter: 2009Q1

REPORT INFORMATION
  Report Type: 
  Country: None (occurrence: None)
  Receive Date: 20090316
  Receipt Date: 20090303
  Transmission Date: 20090719
  Serious: Yes (Hospitalization, Other)
  Sender: FDA-Public Use
  Company Number: 230037M03USA

PATIENT
  Age: 30 Year
  Sex: Female

DRUGS (5)
  1. REBIF [Suspect]
     Indication: MULTIPLE SCLEROSIS
     Dosage: SEE IMAGE
     Route: 058
     Dates: start: 20021224
  2. CONTRACEPTIVE (CONTRACEPTIVE FOR TOPICAL USE) [Concomitant]
  3. ADVIL [Concomitant]
  4. MULTIVITAMIN (MULTIVITAMIN/00831701/) [Concomitant]
  5. CALCIUM (CALCIUM-SANDOZ/00009901/) [Concomitant]

REACTIONS (6)
  - FATIGUE [None]
  - HEPATIC CIRRHOSIS [None]
  - HEPATIC FAILURE [None]
  - INTERNATIONAL NORMALISED RATIO INCREASED [None]
  - PORTAL HYPERTENSION [None]
  - PROTHROMBIN TIME PROLONGED [None]
